FAERS Safety Report 9283494 (Version 1)
Quarter: 2013Q2

REPORT INFORMATION
  Report Type: Spontaneous
  Country: US (occurrence: US)
  Receive Date: 20130510
  Receipt Date: 20130510
  Transmission Date: 20140414
  Serious: No
  Sender: FDA-Public Use
  Company Number: US-GLAXOSMITHKLINE-A1012552A

PATIENT
  Age: 54 Year
  Sex: Female
  Weight: 66.4 kg

DRUGS (6)
  1. TYKERB [Suspect]
     Indication: BREAST CANCER STAGE IV
     Dosage: 1000MG PER DAY
     Route: 048
  2. HERCEPTIN [Concomitant]
  3. TAMOXIFEN [Concomitant]
  4. CALCIUM + VITAMIN D [Concomitant]
  5. GABAPENTIN [Concomitant]
  6. EFFEXOR [Concomitant]

REACTIONS (1)
  - Diarrhoea [Unknown]
